FAERS Safety Report 20334989 (Version 1)
Quarter: 2022Q1

REPORT INFORMATION
  Report Type: Spontaneous
  Country: PL (occurrence: PL)
  Receive Date: 20220114
  Receipt Date: 20220114
  Transmission Date: 20220423
  Serious: Yes (Other)
  Sender: FDA-Public Use
  Company Number: PL-ORPHANEU-2021005624

PATIENT

DRUGS (2)
  1. ISTURISA [Suspect]
     Active Substance: OSILODROSTAT PHOSPHATE
     Indication: Product used for unknown indication
     Dosage: UNK
     Dates: start: 2021
  2. ISTURISA [Suspect]
     Active Substance: OSILODROSTAT PHOSPHATE
     Dosage: 3 MILLIGRAM, BID
     Dates: start: 2021

REACTIONS (8)
  - Neoplasm progression [Unknown]
  - Hypokalaemia [Unknown]
  - Swelling face [Unknown]
  - Cortisol increased [Unknown]
  - Condition aggravated [Unknown]
  - Vision blurred [Unknown]
  - Head discomfort [Unknown]
  - Nausea [Unknown]

NARRATIVE: CASE EVENT DATE: 20210101
